FAERS Safety Report 6503160-1 (Version None)
Quarter: 2009Q4

REPORT INFORMATION
  Report Type: 
  Country: None (occurrence: None)
  Receive Date: 20091201
  Receipt Date: 20090929
  Transmission Date: 20100525
  Serious: Yes (Hospitalization)
  Sender: FDA-Public Use
  Company Number: 2009-198799-NL

PATIENT
  Age: 50 Year
  Sex: Female
  Weight: 61.2 kg

DRUGS (6)
  1. NUVARING [Suspect]
     Indication: MENSTRUATION IRREGULAR
     Dates: start: 20031201, end: 20051201
  2. MAXALT [Concomitant]
  3. ACTONEL [Concomitant]
  4. CITRUCEL [Concomitant]
  5. FORTAMET [Concomitant]
  6. MIACALCIN [Concomitant]

REACTIONS (2)
  - DEEP VEIN THROMBOSIS [None]
  - OFF LABEL USE [None]
